FAERS Safety Report 15365246 (Version 2)
Quarter: 2018Q3

REPORT INFORMATION
  Report Type: Spontaneous
  Country: US (occurrence: US)
  Receive Date: 20180910
  Receipt Date: 20180928
  Transmission Date: 20181010
  Serious: Yes (Death, Life-Threatening, Hospitalization, Other)
  Sender: FDA-Public Use
  Company Number: US-ACCORD-071417

PATIENT
  Age: 14 Year
  Sex: Male

DRUGS (2)
  1. TACROLIMUS. [Suspect]
     Active Substance: TACROLIMUS
     Indication: IMMUNOSUPPRESSION
  2. ENTECAVIR. [Suspect]
     Active Substance: ENTECAVIR
     Indication: HEPATITIS B

REACTIONS (4)
  - Autoimmune haemolytic anaemia [Fatal]
  - Histiocytosis haematophagic [Fatal]
  - Mycoplasma infection [Unknown]
  - Renal tubular injury [Unknown]
